FAERS Safety Report 14329286 (Version 2)
Quarter: 2018Q1

REPORT INFORMATION
  Report Type: Spontaneous
  Country: US (occurrence: US)
  Receive Date: 20171227
  Receipt Date: 20180111
  Transmission Date: 20180509
  Serious: Yes (Hospitalization, Other)
  Sender: FDA-Public Use
  Company Number: US-SAOL THERAPEUTICS-2017SAO03518

PATIENT
  Age: 59 Year
  Sex: Female
  Weight: 63.49 kg

DRUGS (15)
  1. COMPOUNDED BACLOFEN [Suspect]
     Active Substance: BACLOFEN
     Indication: COMPLEX REGIONAL PAIN SYNDROME
     Dosage: 262.09 ?G, \DAY - MAX
     Route: 037
     Dates: start: 20171102
  2. BACLOFEN. [Suspect]
     Active Substance: BACLOFEN
     Dosage: 10 MG, UNK
     Route: 048
  3. COMPOUNDED BACLOFEN [Suspect]
     Active Substance: BACLOFEN
     Dosage: 58.34 ?G, \DAY
     Route: 037
     Dates: start: 20180103
  4. DILAUDID [Suspect]
     Active Substance: HYDROMORPHONE HYDROCHLORIDE
     Dosage: 2.500 MG, \DAY
     Route: 037
     Dates: start: 20180103
  5. FENTANYL. [Suspect]
     Active Substance: FENTANYL
     Dosage: 166.7 ?G, \DAY
     Route: 037
     Dates: start: 20180103
  6. COMPOUNDED BACLOFEN [Suspect]
     Active Substance: BACLOFEN
     Dosage: 63.11 ?G, \DAY
     Route: 037
     Dates: start: 20171229
  7. NEURONTIN [Concomitant]
     Active Substance: GABAPENTIN
     Dosage: 100 MG, 3X/DAY
  8. DILAUDID [Suspect]
     Active Substance: HYDROMORPHONE HYDROCHLORIDE
     Dosage: 9.511 MG, \DAY
     Route: 037
     Dates: start: 20171102
  9. FENTANYL. [Suspect]
     Active Substance: FENTANYL
     Dosage: 180.3 ?G, \DAY
     Route: 037
     Dates: start: 20171229
  10. COMPOUNDED BACLOFEN [Suspect]
     Active Substance: BACLOFEN
     Indication: MUSCLE SPASMS
     Dosage: UNK
     Route: 037
     Dates: start: 20170419
  11. COMPOUNDED BACLOFEN [Suspect]
     Active Substance: BACLOFEN
     Indication: PAIN
     Dosage: 221.92 ?G, \DAY
     Route: 037
     Dates: start: 20171102
  12. DILAUDID [Suspect]
     Active Substance: HYDROMORPHONE HYDROCHLORIDE
     Dosage: 2.705 MG, \DAY
     Route: 037
     Dates: start: 20171229
  13. FENTANYL. [Suspect]
     Active Substance: FENTANYL
     Dosage: 634.1 ?G, \DAY
     Route: 037
     Dates: start: 20171102
  14. DILAUDID [Suspect]
     Active Substance: HYDROMORPHONE HYDROCHLORIDE
     Dosage: 11.232 MG, \DAY - MAX
     Route: 037
     Dates: start: 20171102
  15. FENTANYL. [Suspect]
     Active Substance: FENTANYL
     Dosage: 748.8 ?G, \DAY
     Route: 037
     Dates: start: 20171102

REACTIONS (6)
  - Mood altered [Unknown]
  - Pain [Unknown]
  - Therapy non-responder [Unknown]
  - Suicidal ideation [Unknown]
  - Hyperaesthesia [Not Recovered/Not Resolved]
  - Depression [Unknown]

NARRATIVE: CASE EVENT DATE: 2017
